FAERS Safety Report 5322304-0 (Version None)
Quarter: 2007Q2

REPORT INFORMATION
  Report Type: 
  Country: None (occurrence: None)
  Receive Date: 20070511
  Receipt Date: 20070504
  Transmission Date: 20071010
  Serious: Yes (Hospitalization)
  Sender: FDA-Public Use
  Company Number: B0470089A

PATIENT
  Age: 76 Year
  Sex: Female
  Weight: 60 kg

DRUGS (19)
  1. AUGMENTIN '125' [Suspect]
     Indication: STAPHYLOCOCCAL OSTEOMYELITIS
     Dosage: 1.2G TWICE PER DAY
     Route: 042
     Dates: start: 20070319, end: 20070321
  2. SINEMET [Suspect]
     Indication: PARKINSON'S DISEASE
     Route: 048
     Dates: start: 20070309
  3. DAFALGAN [Suspect]
     Indication: PAIN
     Dosage: 1G FOUR TIMES PER DAY
     Route: 048
     Dates: start: 20070306, end: 20070313
  4. CIPROFLOXACIN HYDROCHLORIDE [Suspect]
     Indication: OSTEOMYELITIS
     Dosage: 500MG TWICE PER DAY
     Route: 048
     Dates: start: 20070413, end: 20070419
  5. DALACIN [Suspect]
     Indication: OSTEOMYELITIS
     Dosage: 600MG THREE TIMES PER DAY
     Route: 048
     Dates: start: 20060403, end: 20060101
  6. FRAGMIN [Suspect]
     Indication: DRUG USE FOR UNKNOWN INDICATION
     Route: 058
     Dates: start: 20070301
  7. MOTILIUM [Concomitant]
     Indication: PARKINSON'S DISEASE
     Dosage: 10MG THREE TIMES PER DAY
     Route: 048
     Dates: start: 20070306
  8. BRUFEN [Concomitant]
     Indication: PAIN
     Dosage: 400MG THREE TIMES PER DAY
     Route: 048
     Dates: start: 20070313, end: 20070330
  9. PENICILLIN G [Concomitant]
     Indication: OSTEOMYELITIS
     Dosage: 600MG THREE TIMES PER DAY
     Route: 042
     Dates: start: 20070321, end: 20070402
  10. PANTOZOL [Concomitant]
     Indication: DRUG USE FOR UNKNOWN INDICATION
     Dosage: 40MG PER DAY
     Route: 065
     Dates: start: 20070324, end: 20070404
  11. TORSEMIDE [Concomitant]
     Indication: DRUG USE FOR UNKNOWN INDICATION
     Dosage: 2.5MG PER DAY
     Route: 048
     Dates: start: 20070402, end: 20070404
  12. EFFORTIL [Concomitant]
     Indication: DRUG USE FOR UNKNOWN INDICATION
     Dosage: 25MG TWICE PER DAY
     Route: 048
  13. CLOZAPINE [Concomitant]
     Indication: DRUG USE FOR UNKNOWN INDICATION
     Route: 048
  14. EFFEXOR [Concomitant]
     Indication: DRUG USE FOR UNKNOWN INDICATION
     Route: 048
  15. ENEMA (UNSPECIFIED) [Concomitant]
     Route: 065
  16. FIG [Concomitant]
     Route: 065
  17. IMPORTAL [Concomitant]
     Route: 065
     Dates: start: 20070310, end: 20070313
  18. LACTULOSE [Concomitant]
     Route: 065
  19. DUPHALAC [Concomitant]
     Route: 065
     Dates: start: 20070314

REACTIONS (4)
  - BLOOD ALKALINE PHOSPHATASE INCREASED [None]
  - HEPATIC ENZYME INCREASED [None]
  - HEPATOCELLULAR DAMAGE [None]
  - LIVER INJURY [None]
